FAERS Safety Report 7032593-2 (Version None)
Quarter: 2010Q4

REPORT INFORMATION
  Report Type: 
  Country: None (occurrence: None)
  Receive Date: 20101007
  Receipt Date: 20100930
  Transmission Date: 20110411
  Serious: Yes (Hospitalization)
  Sender: FDA-Public Use
  Company Number: JP-ROCHE-705944

PATIENT
  Sex: Female
  Weight: 53 kg

DRUGS (25)
  1. TOCILIZUMAB [Suspect]
     Indication: RHEUMATOID ARTHRITIS
     Dosage: DOSAGE IS UNCERTAIN.
     Route: 041
     Dates: start: 20090824, end: 20090824
  2. TOCILIZUMAB [Suspect]
     Dosage: DOSAGE IS UNCERTAIN.
     Route: 041
     Dates: start: 20090915, end: 20090915
  3. TOCILIZUMAB [Suspect]
     Dosage: DOSAGE IS UNCERTAIN.
     Route: 041
     Dates: start: 20091013, end: 20091013
  4. TOCILIZUMAB [Suspect]
     Dosage: DOSAGE IS UNCERTAIN.
     Route: 041
     Dates: start: 20091124, end: 20091124
  5. TOCILIZUMAB [Suspect]
     Dosage: DOSAGE IS UNCERTAIN.
     Route: 041
     Dates: start: 20091222, end: 20091222
  6. TOCILIZUMAB [Suspect]
     Dosage: DOSAGE IS UNCERTAIN.
     Route: 041
     Dates: start: 20100119, end: 20100119
  7. TOCILIZUMAB [Suspect]
     Dosage: DOSAGE IS UNCERTAIN.
     Route: 041
     Dates: start: 20100223
  8. PREDNISOLONE [Suspect]
     Indication: RHEUMATOID ARTHRITIS
     Dosage: REPORTED AS PREDOHAN
     Route: 048
     Dates: start: 20090827
  9. AZULFIDINE [Concomitant]
     Route: 048
  10. BREDININ [Concomitant]
     Route: 048
     Dates: end: 20091109
  11. CELECOXIB [Concomitant]
     Dosage: REPORTED AS CELECOX
     Route: 048
     Dates: end: 20091109
  12. RENIVEZE [Concomitant]
     Route: 048
     Dates: end: 20090909
  13. LISITRIL [Concomitant]
     Route: 048
     Dates: start: 20090910, end: 20091104
  14. NORVASC [Concomitant]
     Route: 048
  15. TAKEPRON [Concomitant]
     Route: 048
  16. THYRADIN-S [Concomitant]
     Route: 048
  17. LASIX [Concomitant]
     Dosage: NOTE:20-80 MG
     Route: 048
  18. ZYLORIC [Concomitant]
     Route: 048
  19. DIOVAN [Concomitant]
     Route: 048
  20. AMARYL [Concomitant]
     Route: 048
     Dates: end: 20091028
  21. AMARYL [Concomitant]
     Route: 048
     Dates: start: 20091029, end: 20091104
  22. AMARYL [Concomitant]
     Route: 048
     Dates: start: 20091105, end: 20091105
  23. AMARYL [Concomitant]
     Route: 048
     Dates: start: 20091106, end: 20091216
  24. AMARYL [Concomitant]
     Route: 048
     Dates: start: 20091217
  25. RENIVACE [Concomitant]
     Route: 048
     Dates: start: 20091008

REACTIONS (6)
  - CARDIAC FAILURE [None]
  - DIABETES MELLITUS INADEQUATE CONTROL [None]
  - GASTROENTERITIS VIRAL [None]
  - HYPERTENSION [None]
  - MYOCARDIAL INFARCTION [None]
  - RHEUMATOID ARTHRITIS [None]
